FAERS Safety Report 19678150 (Version 1)
Quarter: 2021Q3

REPORT INFORMATION
  Report Type: Spontaneous
  Country: CN (occurrence: CN)
  Receive Date: 20210809
  Receipt Date: 20210809
  Transmission Date: 20211014
  Serious: Yes (Death, Other)
  Sender: FDA-Public Use
  Company Number: CN-ELI_LILLY_AND_COMPANY-CN202108001849

PATIENT
  Age: 52 Year
  Sex: Male

DRUGS (2)
  1. SODIUM CHLORIDE. [Concomitant]
     Active Substance: SODIUM CHLORIDE
     Indication: BILE DUCT CANCER
     Dosage: 250 ML, SINGLE
     Route: 041
     Dates: start: 20210702, end: 20210702
  2. GEMCITABINE HYDROCHLORIDE. [Suspect]
     Active Substance: GEMCITABINE HYDROCHLORIDE
     Indication: BILE DUCT CANCER
     Dosage: 1.4 G, SINGLE
     Route: 041
     Dates: start: 20210702, end: 20210702

REACTIONS (5)
  - Malignant neoplasm progression [Unknown]
  - Infection [Unknown]
  - Gastrointestinal haemorrhage [Unknown]
  - Off label use [Unknown]
  - Myelosuppression [Fatal]

NARRATIVE: CASE EVENT DATE: 20210704
